FAERS Safety Report 4301170-6 (Version None)
Quarter: 2004Q1

REPORT INFORMATION
  Report Type: 
  Country: None (occurrence: None)
  Receive Date: 20040218
  Receipt Date: 20031027
  Transmission Date: 20041129
  Serious: No
  Sender: FDA-Public Use
  Company Number: 2003-10-2861

PATIENT
  Age: 50 Year
  Sex: Female

DRUGS (2)
  1. PEG-INTRON [Suspect]
     Indication: HEPATITIS C
     Dosage: UNKOWN SUBCUTANEOUS
     Dates: start: 20030101
  2. REBETOL [Suspect]
     Indication: HEPATITIS C
     Dosage: UNKOWN ORAL
     Dates: start: 20030101

REACTIONS (1)
  - BLOOD URIC ACID INCREASED [None]
